FAERS Safety Report 5627688-1 (Version None)
Quarter: 2008Q1

REPORT INFORMATION
  Report Type: 
  Country: None (occurrence: None)
  Receive Date: 20080215
  Receipt Date: 20080215
  Transmission Date: 20080703
  Serious: Yes (Hospitalization)
  Sender: FDA-Public Use
  Company Number: A0709929A

PATIENT
  Age: 55 Year
  Sex: Female

DRUGS (1)
  1. ALLI [Suspect]
     Indication: WEIGHT LOSS DIET
     Route: 048
     Dates: start: 20070619, end: 20070701

REACTIONS (6)
  - ABDOMINAL PAIN UPPER [None]
  - BLOOD POTASSIUM DECREASED [None]
  - DIARRHOEA [None]
  - FREQUENT BOWEL MOVEMENTS [None]
  - GASTROINTESTINAL DISORDER [None]
  - STEATORRHOEA [None]
